FAERS Safety Report 18482990 (Version 1)
Quarter: 2020Q4

REPORT INFORMATION
  Report Type: Other
  Country: US (occurrence: US)
  Receive Date: 20201110
  Receipt Date: 20201110
  Transmission Date: 20210114
  Serious: Yes (Hospitalization, Other)
  Sender: FDA-Public Use
  Company Number: US-APPCO PHARMA LLC-2093743

PATIENT
  Age: 60 Year
  Sex: Male

DRUGS (1)
  1. HYDROXYCHLOROQUINE SULFATE. [Suspect]
     Active Substance: HYDROXYCHLOROQUINE SULFATE
     Indication: COVID-19
     Route: 065

REACTIONS (3)
  - Methaemoglobinaemia [Unknown]
  - Haemolytic anaemia [Unknown]
  - Off label use [Unknown]
